FAERS Safety Report 4786128-5 (Version None)
Quarter: 2005Q3

REPORT INFORMATION
  Report Type: 
  Country: None (occurrence: None)
  Receive Date: 20050930
  Receipt Date: 20050210
  Transmission Date: 20060218
  Serious: Yes (Hospitalization)
  Sender: FDA-Public Use
  Company Number: 2005FR-00286

PATIENT
  Age: 68 Year
  Sex: Male

DRUGS (8)
  1. ASPIRIN [Suspect]
     Indication: MYOCARDIAL INFARCTION
     Dosage: 75MG OD ORAL
     Route: 048
     Dates: start: 20000101, end: 20050111
  2. LOSARTAN POTASSIUM [Concomitant]
  3. NIFEDIPINE [Concomitant]
  4. SIMVASTATIN [Concomitant]
  5. ATENOLOL [Concomitant]
  6. ISMN [Concomitant]
  7. NICORANDIL [Concomitant]
  8. QUININE SULPHATE [Concomitant]

REACTIONS (2)
  - HAEMATEMESIS [None]
  - MELAENA [None]
